FAERS Safety Report 4648209-6 (Version None)
Quarter: 2005Q2

REPORT INFORMATION
  Report Type: 
  Country: None (occurrence: None)
  Receive Date: 20050331
  Receipt Date: 20050110
  Transmission Date: 20051028
  Serious: No
  Sender: FDA-Public Use
  Company Number: 05P-163-0285897-00

PATIENT
  Age: 48 Year
  Sex: Female
  Weight: 72.5755 kg

DRUGS (8)
  1. HUMIRA [Suspect]
     Indication: RHEUMATOID ARTHRITIS
     Dosage: 40 MG, 1 IN 2 WK, SUBCUTANEOUS
     Route: 058
     Dates: start: 20040101, end: 20040101
  2. HUMIRA [Suspect]
     Indication: RHEUMATOID ARTHRITIS
     Dosage: 40 MG, 1 IN 2 WK, SUBCUTANEOUS
     Route: 058
     Dates: start: 20040101
  3. METHOTREXATE [Concomitant]
  4. CELECOXIB [Concomitant]
  5. PREDNISONE TAB [Concomitant]
  6. ALENDRONATE SODIUM [Concomitant]
  7. IRON [Concomitant]
  8. ULTRACET [Concomitant]

REACTIONS (2)
  - ASTHENIA [None]
  - TREMOR [None]
